FAERS Safety Report 23650264 (Version 2)
Quarter: 2024Q2

REPORT INFORMATION
  Report Type: Report from Study
  Country: CA (occurrence: CA)
  Receive Date: 20240319
  Receipt Date: 20240410
  Transmission Date: 20240716
  Serious: Yes (Death)
  Sender: FDA-Public Use
  Company Number: CA-ABBVIE-5683969

PATIENT
  Age: 16 Year
  Sex: Male
  Weight: 50 kg

DRUGS (5)
  1. VENCLEXTA [Suspect]
     Active Substance: VENETOCLAX
     Indication: Acute myeloid leukaemia
     Dosage: FREQUENCY TEXT: DAY 2-28
     Route: 048
     Dates: start: 202303, end: 20230421
  2. VENCLEXTA [Suspect]
     Active Substance: VENETOCLAX
     Indication: Acute myeloid leukaemia
     Dosage: FREQUENCY TEXT: DAY 1
     Route: 048
     Dates: start: 20230324, end: 20230325
  3. CYTARABINE [Suspect]
     Active Substance: CYTARABINE
     Indication: Product used for unknown indication
     Dosage: LOW DOSE?FREQUENCY TEXT: WEEKLY 4 TIMES
     Route: 042
     Dates: start: 20230328, end: 20230331
  4. CYTARABINE [Suspect]
     Active Substance: CYTARABINE
     Indication: Product used for unknown indication
     Dosage: LOW DOSE?FIRST ADMIN DATE:2023? FREQUENCY TEXT: DAILY 4 TIME
     Route: 042
     Dates: end: 20230414
  5. AZACITIDINE [Concomitant]
     Active Substance: AZACITIDINE
     Indication: Product used for unknown indication
     Dosage: FREQUENCY TEXT: DAILY 7 TIMES
     Route: 042
     Dates: start: 20230421, end: 20230424

REACTIONS (3)
  - Acute myeloid leukaemia refractory [Fatal]
  - Drug ineffective [Unknown]
  - Drug ineffective [Unknown]

NARRATIVE: CASE EVENT DATE: 20230425
